FAERS Safety Report 13871323 (Version 1)
Quarter: 2017Q3

REPORT INFORMATION
  Report Type: Spontaneous
  Country: JP (occurrence: JP)
  Receive Date: 20170816
  Receipt Date: 20170816
  Transmission Date: 20171127
  Serious: Yes (Hospitalization)
  Sender: FDA-Public Use
  Company Number: JP-BAYER-2017-147887

PATIENT

DRUGS (1)
  1. NEXAVAR [Suspect]
     Active Substance: SORAFENIB
     Indication: HEPATOCELLULAR CARCINOMA
     Dosage: 400 MG, QD
     Route: 048
     Dates: start: 20170531

REACTIONS (2)
  - VIth nerve disorder [Not Recovered/Not Resolved]
  - IIIrd nerve disorder [Not Recovered/Not Resolved]

NARRATIVE: CASE EVENT DATE: 20170731
